FAERS Safety Report 8488697-0 (Version None)
Quarter: 2012Q2

REPORT INFORMATION
  Report Type: 
  Country: None (occurrence: None)
  Receive Date: 20120626
  Receipt Date: 20120612
  Transmission Date: 20120825
  Serious: Yes (Hospitalization, Other)
  Sender: FDA-Public Use
  Company Number: EU-2012-10083

PATIENT
  Sex: Female
  Weight: 54 kg

DRUGS (63)
  1. PANTOPRAZOLE SODIUM [Concomitant]
  2. EMEND [Concomitant]
  3. ZOFRAN [Concomitant]
  4. DEXAMETHASONE SODIUM POSPHATE [Concomitant]
  5. NULYTELY [Concomitant]
  6. PANTOPRAZOLE SODIUM [Concomitant]
  7. GRANISETRON (GRANISETRON HYDROCHLORIDE) [Concomitant]
  8. RANITIDINE HYDROCHLORIDE [Concomitant]
  9. VERGENTAN (ALIZAPRIDE HYDROCHLORIDE) [Concomitant]
  10. RANITIDINE HYDROCHLORIDE [Concomitant]
  11. ZOFRAN [Concomitant]
  12. METOCLOPRAMIDE [Concomitant]
  13. RIOPAN (MAGALDRATE) GEL [Concomitant]
  14. LEVOTHYROXINE SODIUM [Concomitant]
  15. DIMENHYDRINATE [Concomitant]
  16. CARBOPLATIN [Concomitant]
  17. ETOPOSIDE [Concomitant]
  18. NOVALGIN (METAMIZOLE SODIUM) [Concomitant]
  19. CLEMASTINE FUMARATE [Concomitant]
  20. DEXAMETHASONE SODIUM POSPHATE [Concomitant]
  21. PREDNISOLON (PREDNISOLONE SODIUM SUCCINATE) [Concomitant]
  22. ZANTAC [Concomitant]
  23. SAMSCA [Suspect]
     Indication: INAPPROPRIATE ANTIDIURETIC HORMONE SECRETION
     Dosage: SEE IMAGE
     Route: 048
     Dates: start: 20120412, end: 20120412
  24. SAMSCA [Suspect]
     Indication: HYPONATRAEMIA
     Dosage: SEE IMAGE
     Route: 048
     Dates: start: 20120412, end: 20120412
  25. SAMSCA [Suspect]
     Indication: INAPPROPRIATE ANTIDIURETIC HORMONE SECRETION
     Dosage: SEE IMAGE
     Route: 048
     Dates: start: 20120417, end: 20120418
  26. SAMSCA [Suspect]
     Indication: HYPONATRAEMIA
     Dosage: SEE IMAGE
     Route: 048
     Dates: start: 20120417, end: 20120418
  27. SAMSCA [Suspect]
     Indication: INAPPROPRIATE ANTIDIURETIC HORMONE SECRETION
     Dosage: SEE IMAGE
     Route: 048
     Dates: start: 20120109, end: 20120109
  28. SAMSCA [Suspect]
     Indication: HYPONATRAEMIA
     Dosage: SEE IMAGE
     Route: 048
     Dates: start: 20120109, end: 20120109
  29. SAMSCA [Suspect]
     Indication: INAPPROPRIATE ANTIDIURETIC HORMONE SECRETION
     Dosage: SEE IMAGE
     Route: 048
     Dates: start: 20120330, end: 20120408
  30. SAMSCA [Suspect]
     Indication: HYPONATRAEMIA
     Dosage: SEE IMAGE
     Route: 048
     Dates: start: 20120330, end: 20120408
  31. SAMSCA [Suspect]
     Indication: INAPPROPRIATE ANTIDIURETIC HORMONE SECRETION
     Dosage: SEE IMAGE
     Route: 048
     Dates: start: 20120420, end: 20120421
  32. SAMSCA [Suspect]
     Indication: HYPONATRAEMIA
     Dosage: SEE IMAGE
     Route: 048
     Dates: start: 20120420, end: 20120421
  33. SAMSCA [Suspect]
     Indication: INAPPROPRIATE ANTIDIURETIC HORMONE SECRETION
     Dosage: SEE IMAGE
     Route: 048
     Dates: start: 20111221, end: 20111221
  34. SAMSCA [Suspect]
     Indication: HYPONATRAEMIA
     Dosage: SEE IMAGE
     Route: 048
     Dates: start: 20111221, end: 20111221
  35. SAMSCA [Suspect]
     Indication: INAPPROPRIATE ANTIDIURETIC HORMONE SECRETION
     Dosage: SEE IMAGE
     Route: 048
     Dates: start: 20120117, end: 20120117
  36. SAMSCA [Suspect]
     Indication: HYPONATRAEMIA
     Dosage: SEE IMAGE
     Route: 048
     Dates: start: 20120117, end: 20120117
  37. SAMSCA [Suspect]
     Indication: INAPPROPRIATE ANTIDIURETIC HORMONE SECRETION
     Dosage: SEE IMAGE
     Route: 048
     Dates: start: 20120423
  38. SAMSCA [Suspect]
     Indication: HYPONATRAEMIA
     Dosage: SEE IMAGE
     Route: 048
     Dates: start: 20120423
  39. SAMSCA [Suspect]
     Indication: INAPPROPRIATE ANTIDIURETIC HORMONE SECRETION
     Dosage: SEE IMAGE
     Route: 048
     Dates: start: 20120202, end: 20120202
  40. SAMSCA [Suspect]
     Indication: HYPONATRAEMIA
     Dosage: SEE IMAGE
     Route: 048
     Dates: start: 20120202, end: 20120202
  41. SAMSCA [Suspect]
     Indication: INAPPROPRIATE ANTIDIURETIC HORMONE SECRETION
     Dosage: SEE IMAGE
     Route: 048
     Dates: start: 20120222, end: 20120222
  42. SAMSCA [Suspect]
     Indication: HYPONATRAEMIA
     Dosage: SEE IMAGE
     Route: 048
     Dates: start: 20120222, end: 20120222
  43. SAMSCA [Suspect]
     Indication: INAPPROPRIATE ANTIDIURETIC HORMONE SECRETION
     Dosage: SEE IMAGE
     Route: 048
     Dates: start: 20120228, end: 20120326
  44. SAMSCA [Suspect]
     Indication: HYPONATRAEMIA
     Dosage: SEE IMAGE
     Route: 048
     Dates: start: 20120228, end: 20120326
  45. SAMSCA [Suspect]
     Indication: INAPPROPRIATE ANTIDIURETIC HORMONE SECRETION
     Dosage: SEE IMAGE
     Route: 048
     Dates: start: 20120414, end: 20120414
  46. SAMSCA [Suspect]
     Indication: HYPONATRAEMIA
     Dosage: SEE IMAGE
     Route: 048
     Dates: start: 20120414, end: 20120414
  47. SALINE (SALINE) 0.9% [Concomitant]
  48. SALINE (SALINE)  10% [Concomitant]
  49. HALDOL [Concomitant]
  50. DIMENHYDRINATE [Concomitant]
  51. RIOPAN (MAGALDRATE) GEL [Concomitant]
  52. SALINE (SALINE) 0.68% [Concomitant]
  53. FENOFIBRATE [Concomitant]
  54. BEZAFIBRAT (BEZAFIBRATE) [Concomitant]
  55. METOPROLOL SUCCINATE [Concomitant]
  56. NACL (NACL) [Concomitant]
  57. ATACAND [Concomitant]
  58. METOCLOPRAMIDE HYDROCHLORIDE [Concomitant]
  59. EMEND [Concomitant]
  60. TAVEGIL (CLEMASTINE) TABLET [Concomitant]
  61. FRAXIPARIN (NADROPARIN CALCIUM) [Concomitant]
  62. BUSCOPAN (HYOSCINE BUTYLBROMIDE) CAPSULE [Concomitant]
  63. EMEND [Concomitant]

REACTIONS (5)
  - THIRST [None]
  - GENERAL PHYSICAL HEALTH DETERIORATION [None]
  - RAPID CORRECTION OF HYPONATRAEMIA [None]
  - VOMITING [None]
  - NAUSEA [None]
